FAERS Safety Report 19890456 (Version 1)
Quarter: 2021Q3

REPORT INFORMATION
  Report Type: Report from Study
  Country: US (occurrence: US)
  Receive Date: 20210927
  Receipt Date: 20210927
  Transmission Date: 20211014
  Serious: Yes (Hospitalization)
  Sender: FDA-Public Use
  Company Number: US-TAKEDA-2021TUS057880

PATIENT
  Age: 59 Year
  Sex: Female

DRUGS (8)
  1. TEDUGLUTIDE [Suspect]
     Active Substance: TEDUGLUTIDE
     Indication: SHORT-BOWEL SYNDROME
     Dosage: 3.05 MILLIGRAM, QD
     Route: 058
     Dates: start: 20210812
  2. TEDUGLUTIDE [Suspect]
     Active Substance: TEDUGLUTIDE
     Dosage: 3.05 MILLIGRAM, QD
     Route: 058
     Dates: start: 20210813
  3. TEDUGLUTIDE [Suspect]
     Active Substance: TEDUGLUTIDE
     Indication: SHORT-BOWEL SYNDROME
     Dosage: 3.05 MILLIGRAM, QD
     Route: 058
     Dates: start: 20210812
  4. TEDUGLUTIDE [Suspect]
     Active Substance: TEDUGLUTIDE
     Dosage: 3.05 MILLIGRAM, QD
     Route: 058
     Dates: start: 20210813
  5. TEDUGLUTIDE [Suspect]
     Active Substance: TEDUGLUTIDE
     Indication: SHORT-BOWEL SYNDROME
     Dosage: 3.05 MILLIGRAM, QD
     Route: 058
     Dates: start: 20210812
  6. TEDUGLUTIDE [Suspect]
     Active Substance: TEDUGLUTIDE
     Indication: SHORT-BOWEL SYNDROME
     Dosage: 3.05 MILLIGRAM, QD
     Route: 058
     Dates: start: 20210812
  7. TEDUGLUTIDE [Suspect]
     Active Substance: TEDUGLUTIDE
     Dosage: 3.05 MILLIGRAM, QD
     Route: 058
     Dates: start: 20210813
  8. TEDUGLUTIDE [Suspect]
     Active Substance: TEDUGLUTIDE
     Dosage: 3.05 MILLIGRAM, QD
     Route: 058
     Dates: start: 20210813

REACTIONS (5)
  - Hospitalisation [Recovered/Resolved]
  - Pruritus [Unknown]
  - White blood cell count abnormal [Unknown]
  - Pyrexia [Unknown]
  - Oedema peripheral [Unknown]

NARRATIVE: CASE EVENT DATE: 20210920
